FAERS Safety Report 15339522 (Version 3)
Quarter: 2019Q4

REPORT INFORMATION
  Report Type: Spontaneous
  Country: US (occurrence: US)
  Receive Date: 20180831
  Receipt Date: 20191021
  Transmission Date: 20200122
  Serious: Yes (Hospitalization, Other)
  Sender: FDA-Public Use
  Company Number: US-PFIZER INC-2018352120

PATIENT
  Age: 61 Year

DRUGS (25)
  1. VIAGRA [Suspect]
     Active Substance: SILDENAFIL CITRATE
     Dosage: 25 MG, AS NEEDED (50 MG TABS; 1/2 TAB AS NEEDED APPROX. 4 TIMES A MONTH)
     Dates: start: 20050218, end: 20050304
  2. METHYL SALICYLATE [Concomitant]
     Active Substance: METHYL SALICYLATE
     Indication: ARTHRALGIA
     Dosage: UNK
     Dates: start: 20160328
  3. VIAGRA [Suspect]
     Active Substance: SILDENAFIL CITRATE
     Dosage: 50 MG, AS NEEDED (100 MG TABS; 1/2 TAB AS NEEDED APPROX. 4 TIMES A MONTH)
     Dates: start: 20050112, end: 20050217
  4. VIAGRA [Suspect]
     Active Substance: SILDENAFIL CITRATE
     Dosage: 25 MG, AS NEEDED (50 MG TABS; 1/2 TAB AS NEEDED APPROX. 1-4 TIMES EVERY MONTH)
     Dates: start: 20050305, end: 20060406
  5. ZOLOFT [Concomitant]
     Active Substance: SERTRALINE HYDROCHLORIDE
     Indication: DEPRESSION
     Dosage: UNK
     Dates: start: 199801
  6. AMOXICILLIN. [Concomitant]
     Active Substance: AMOXICILLIN
     Indication: TOOTH INFECTION
     Dosage: UNK
     Dates: start: 20150324, end: 201504
  7. VIAGRA [Suspect]
     Active Substance: SILDENAFIL CITRATE
     Dosage: 50 MG, AS NEEDED (100 MG TAB: 1/2 TAB; OCCASIONAL USE APPROX. ONCE EVERY 1-3 MONTHS)
     Dates: start: 20180116, end: 20180130
  8. VIAGRA [Suspect]
     Active Substance: SILDENAFIL CITRATE
     Dosage: 50 MG, AS NEEDED (100 MG TABS; 1/2 TAB AS NEEDED APPROX. 2-4 TIMES EVERY MONTH)
     Dates: start: 20120604, end: 20150517
  9. VIAGRA [Suspect]
     Active Substance: SILDENAFIL CITRATE
     Dosage: 100 MG, AS NEEDED (1 TAB AS NEEDED APPROX. 1-4 TIMES PER MONTH)
     Dates: start: 20130625, end: 20140413
  10. HYDROCODONE/PARACETAMOL [Concomitant]
     Indication: TOOTHACHE
     Dosage: UNK
     Dates: start: 20170112
  11. HYDROCODONE/PARACETAMOL [Concomitant]
     Dosage: UNK
     Dates: start: 201702
  12. OXYCODONE [Concomitant]
     Active Substance: OXYCODONE
     Indication: PAIN
     Dosage: UNK UNK, AS NEEDED
     Dates: start: 20140821
  13. VIAGRA [Suspect]
     Active Substance: SILDENAFIL CITRATE
     Dosage: 100 MG, AS NEEDED (1 TAB AS NEEDED APPROX. ONCE EVERY 1-2 MONTHS)
     Dates: start: 20150518, end: 20160721
  14. METHYL SALICYLATE [Concomitant]
     Active Substance: METHYL SALICYLATE
     Indication: MYALGIA
  15. AMOXICILLIN. [Concomitant]
     Active Substance: AMOXICILLIN
     Dosage: UNK
     Dates: start: 20160909, end: 20160915
  16. VIAGRA [Suspect]
     Active Substance: SILDENAFIL CITRATE
     Dosage: 100 MG, AS NEEDED (1 TAB AS NEEDED APPROX. ONCE EVERY 1-2 MONTHS)
     Dates: start: 20160722, end: 201610
  17. LEVITRA [Concomitant]
     Active Substance: VARDENAFIL HYDROCHLORIDE
     Indication: ERECTILE DYSFUNCTION
     Dosage: 10 MG, AS NEEDED (20 MG TABS; 1/2 TAB AS NEEDED)
     Dates: start: 20061017, end: 201004
  18. AMOXICILLIN. [Concomitant]
     Active Substance: AMOXICILLIN
     Indication: INFECTION
     Dosage: UNK
     Dates: start: 20161212, end: 201701
  19. ACETAMINOPHEN W/OXYCODONE [Concomitant]
     Active Substance: ACETAMINOPHEN\OXYCODONE HYDROCHLORIDE
     Indication: PAIN
     Dosage: UNK UNK, AS NEEDED
     Dates: start: 20140821
  20. WELLBUTRIN [Concomitant]
     Active Substance: BUPROPION HYDROCHLORIDE
     Indication: DEPRESSION
     Dosage: UNK
     Dates: start: 200001
  21. VIAGRA [Suspect]
     Active Substance: SILDENAFIL CITRATE
     Indication: ERECTILE DYSFUNCTION
     Dosage: UNK
     Route: 048
     Dates: start: 200501, end: 201610
  22. VIAGRA [Suspect]
     Active Substance: SILDENAFIL CITRATE
     Dosage: 50 MG, AS NEEDED (100 MG TABS; 1/2 TAB AS NEEDED APPROX. 1-2 TIMES PER MONTH)
     Dates: start: 20060407, end: 20061212
  23. TYLENOL [Concomitant]
     Active Substance: ACETAMINOPHEN
     Indication: PAIN
     Dosage: UNK UNK, AS NEEDED
     Dates: start: 2001
  24. GABAPENTIN. [Concomitant]
     Active Substance: GABAPENTIN
     Indication: PAIN
     Dosage: UNK, AS NEEDED
     Dates: start: 20160328
  25. COUMADIN [Concomitant]
     Active Substance: WARFARIN SODIUM
     Indication: ATRIAL FIBRILLATION
     Dosage: UNK
     Dates: start: 20011008

REACTIONS (1)
  - Malignant melanoma [Unknown]

NARRATIVE: CASE EVENT DATE: 20140414
